FAERS Safety Report 9400119 (Version 2)
Quarter: 2014Q2

REPORT INFORMATION
  Report Type: Spontaneous
  Country: US (occurrence: None)
  Receive Date: 20130621
  Receipt Date: 20140411
  Transmission Date: 20141212
  Serious: Yes (Death)
  Sender: FDA-Public Use
  Company Number: OTH-SPN-2013006

PATIENT
  Age: 14 Year
  Sex: Male

DRUGS (6)
  1. CYSTADANE [Suspect]
     Indication: MOLYBDENUM COFACTOR DEFICIENCY
     Dosage: 2 GMS QD.
     Dates: start: 20080112
  2. BACLOFEN [Concomitant]
  3. LAMOTRIGINE [Concomitant]
  4. LAMICTAL [Concomitant]
  5. PULMICORT [Concomitant]
  6. BUDESONIDE [Concomitant]

REACTIONS (2)
  - Amino acid metabolism disorder [None]
  - Off label use [None]
